FAERS Safety Report 17396460 (Version 3)
Quarter: 2020Q1

REPORT INFORMATION
  Report Type: Spontaneous
  Country: US (occurrence: US)
  Receive Date: 20200210
  Receipt Date: 20200305
  Transmission Date: 20200409
  Serious: Yes (Life-Threatening, Hospitalization, Other)
  Sender: FDA-Public Use
  Company Number: US-GLENMARK PHARMACEUTICALS-2020GMK045912

PATIENT
  Age: 31 Year
  Sex: Female
  Weight: 60 kg

DRUGS (9)
  1. CELLCEPT [Suspect]
     Active Substance: MYCOPHENOLATE MOFETIL\MYCOPHENOLATE MOFETIL HYDROCHLORIDE
     Dosage: 1000 MG, BID
     Route: 048
     Dates: start: 201804, end: 201808
  2. BASILIXIMAB [Suspect]
     Active Substance: BASILIXIMAB
     Indication: IMMUNOSUPPRESSANT DRUG THERAPY
     Dosage: 2 DOSES, ON POSTOPERATIVE DAY 0 AND 4; IN TOTAL
     Route: 042
     Dates: start: 201710, end: 201710
  3. CELLCEPT [Suspect]
     Active Substance: MYCOPHENOLATE MOFETIL\MYCOPHENOLATE MOFETIL HYDROCHLORIDE
     Indication: IMMUNOSUPPRESSANT DRUG THERAPY
     Dosage: 750 MG, BID
     Route: 048
     Dates: start: 201710, end: 201804
  4. CELLCEPT [Suspect]
     Active Substance: MYCOPHENOLATE MOFETIL\MYCOPHENOLATE MOFETIL HYDROCHLORIDE
     Dosage: 250 MG, BID
     Route: 048
  5. TACROLIMUS. [Suspect]
     Active Substance: TACROLIMUS
     Indication: IMMUNOSUPPRESSANT DRUG THERAPY
     Dosage: PROGRAF; GOAL FOR TACROLIMUS LEVEL WAS AROUND 10-12 NG/ML
     Route: 065
     Dates: start: 201710, end: 2018
  6. TACROLIMUS. [Suspect]
     Active Substance: TACROLIMUS
     Dosage: AFTER THE INFECTION, THE GOAL CHANGED TO 5-8 NG/ML
     Route: 065
  7. PREDNISONE. [Suspect]
     Active Substance: PREDNISONE
     Indication: IMMUNOSUPPRESSANT DRUG THERAPY
     Dosage: 5 MG, QD
     Route: 048
     Dates: start: 201712, end: 2018
  8. TACROLIMUS. [Suspect]
     Active Substance: TACROLIMUS
     Dosage: 0.5 MG, BID
     Route: 048
  9. CELLCEPT [Suspect]
     Active Substance: MYCOPHENOLATE MOFETIL\MYCOPHENOLATE MOFETIL HYDROCHLORIDE
     Dosage: 500 MG, BID
     Route: 048

REACTIONS (6)
  - Retroperitoneal lymphadenopathy [Recovered/Resolved]
  - Histoplasmosis [Recovered/Resolved]
  - Granuloma [Recovered/Resolved]
  - Histoplasmosis disseminated [Recovered/Resolved]
  - Lymphadenopathy [Recovered/Resolved]
  - Abdominal lymphadenopathy [Recovered/Resolved]

NARRATIVE: CASE EVENT DATE: 201808
